FAERS Safety Report 5623938-6 (Version None)
Quarter: 2008Q1

REPORT INFORMATION
  Report Type: 
  Country: None (occurrence: None)
  Receive Date: 20080207
  Receipt Date: 20080122
  Transmission Date: 20080703
  Serious: Yes (Hospitalization)
  Sender: FDA-Public Use
  Company Number: 230004M08FRA

PATIENT
  Sex: Female

DRUGS (2)
  1. REBIF [Suspect]
  2. DOLPRANE (PARACETAMOL) [Concomitant]

REACTIONS (3)
  - CYANOSIS [None]
  - OEDEMA PERIPHERAL [None]
  - VASCULITIS [None]
